FAERS Safety Report 18662686 (Version 1)
Quarter: 2020Q4

REPORT INFORMATION
  Report Type: Spontaneous
  Country: US (occurrence: US)
  Receive Date: 20201224
  Receipt Date: 20201224
  Transmission Date: 20210114
  Serious: No
  Sender: FDA-Public Use
  Company Number: US-VIELABIO-VIE-2020-US-000008

PATIENT
  Age: 60 Year
  Sex: Female

DRUGS (1)
  1. UPLIZNA [Suspect]
     Active Substance: INEBILIZUMAB-CDON
     Indication: NEUROMYELITIS OPTICA SPECTRUM DISORDER
     Dosage: 300 MILLIGRAM, UNK
     Route: 065

REACTIONS (2)
  - Chills [Unknown]
  - Hyperhidrosis [Unknown]
